FAERS Safety Report 9656773 (Version 1)
Quarter: 2013Q4

REPORT INFORMATION
  Report Type: Spontaneous
  Country: FR (occurrence: FR)
  Receive Date: 20131030
  Receipt Date: 20131030
  Transmission Date: 20140711
  Serious: Yes (Hospitalization, Other)
  Sender: FDA-Public Use
  Company Number: FR-PFIZER INC-2013304143

PATIENT
  Age: 50 Year
  Sex: Female

DRUGS (4)
  1. EFFEXOR [Suspect]
     Dosage: 75 MG, 3X/DAY
     Route: 048
  2. LOXAPAC [Interacting]
     Dosage: 50 MG, 2X/DAY
     Route: 048
  3. TRANXENE [Interacting]
     Dosage: 50 MG, DAILY
     Route: 048
  4. TERCIAN [Interacting]
     Dosage: 12.5 MG, 3X/DAY
     Route: 048

REACTIONS (3)
  - Parkinsonism [Not Recovered/Not Resolved]
  - Drug interaction [Not Recovered/Not Resolved]
  - Back pain [Unknown]
